FAERS Safety Report 6583758-5 (Version None)
Quarter: 2010Q1

REPORT INFORMATION
  Report Type: 
  Country: None (occurrence: None)
  Receive Date: 20100212
  Receipt Date: 20100212
  Transmission Date: 20100710
  Serious: Yes (Other)
  Sender: FDA-Public Use
  Company Number: None

PATIENT
  Sex: Female
  Weight: 111.5849 kg

DRUGS (1)
  1. OXCARBAZEPINE [Suspect]
     Dosage: 3ML PO BID
     Route: 048
     Dates: start: 20100125

REACTIONS (3)
  - DIET REFUSAL [None]
  - HEADACHE [None]
  - IRRITABILITY [None]
